FAERS Safety Report 7439565-4 (Version None)
Quarter: 2011Q2

REPORT INFORMATION
  Report Type: 
  Country: None (occurrence: None)
  Receive Date: 20110427
  Receipt Date: 20110425
  Transmission Date: 20111010
  Serious: Yes (Other)
  Sender: FDA-Public Use
  Company Number: CA-PFIZER INC-2011089580

PATIENT
  Age: 85 Year
  Sex: Female
  Weight: 11.338 kg

DRUGS (1)
  1. LIPITOR [Suspect]
     Indication: BLOOD CHOLESTEROL INCREASED
     Dosage: UNK
     Dates: start: 20100824

REACTIONS (3)
  - WEIGHT DECREASED [None]
  - STEATORRHOEA [None]
  - DIARRHOEA [None]
